FAERS Safety Report 15113982 (Version 2)
Quarter: 2024Q2

REPORT INFORMATION
  Report Type: Spontaneous
  Country: ES (occurrence: ES)
  Receive Date: 20180706
  Receipt Date: 20240518
  Transmission Date: 20240716
  Serious: Yes (Other)
  Sender: FDA-Public Use
  Company Number: ES-AUROBINDO-AUR-APL-2018-033727

PATIENT
  Age: 87 Year
  Sex: Female

DRUGS (5)
  1. IRBESARTAN [Interacting]
     Active Substance: IRBESARTAN
     Indication: Product used for unknown indication
     Dosage: UNK, 1-0-0
     Route: 048
     Dates: start: 20120101
  2. IRBESARTAN AND HYDROCHLOROTHIAZIDE [Interacting]
     Active Substance: HYDROCHLOROTHIAZIDE\IRBESARTAN
     Indication: Product used for unknown indication
     Dosage: UNK, 1-0-0
     Route: 048
     Dates: start: 20170314
  3. CONDROSAN [Concomitant]
     Indication: Product used for unknown indication
     Dosage: UNK, 1-0-0
     Route: 048
     Dates: start: 20170314
  4. ZALDIAR [Concomitant]
     Active Substance: ACETAMINOPHEN\TRAMADOL HYDROCHLORIDE
     Indication: Product used for unknown indication
     Dosage: UNK, 1-1-1
     Route: 048
     Dates: start: 20170314
  5. LORAZEPAM [Concomitant]
     Active Substance: LORAZEPAM
     Indication: Product used for unknown indication
     Dosage: UNK, 1 CP NIGHT
     Route: 048
     Dates: start: 20170314, end: 20171128

REACTIONS (2)
  - Hyperkalaemia [Recovered/Resolved]
  - Acute kidney injury [Recovered/Resolved]

NARRATIVE: CASE EVENT DATE: 20171128
